FAERS Safety Report 4473884-9 (Version None)
Quarter: 2004Q4

REPORT INFORMATION
  Report Type: 
  Country: None (occurrence: None)
  Receive Date: 20041008
  Receipt Date: 20041008
  Transmission Date: 20050328
  Serious: No
  Sender: FDA-Public Use
  Company Number: None

PATIENT
  Age: 34 Year
  Sex: Female
  Weight: 49.4421 kg

DRUGS (1)
  1. CLARITIN [Suspect]
     Indication: RHINITIS ALLERGIC
     Dosage: 10 MG   DAY   ORAL
     Route: 048
     Dates: start: 20040922, end: 20041004

REACTIONS (2)
  - ACNE CYSTIC [None]
  - BREAST TENDERNESS [None]
